FAERS Safety Report 16299010 (Version 1)
Quarter: 2019Q2

REPORT INFORMATION
  Report Type: Spontaneous
  Country: US (occurrence: US)
  Receive Date: 20190510
  Receipt Date: 20190510
  Transmission Date: 20190711
  Serious: Yes (Hospitalization, Other)
  Sender: FDA-Public Use
  Company Number: US-PFIZER INC-2019192846

PATIENT
  Age: 46 Year
  Sex: Male
  Weight: 102.51 kg

DRUGS (2)
  1. LYRICA [Suspect]
     Active Substance: PREGABALIN
     Indication: BURNING SENSATION
     Dosage: 75 MG, 1X/DAY
     Dates: start: 201602
  2. LYRICA [Suspect]
     Active Substance: PREGABALIN
     Indication: NERVE INJURY
     Dosage: 150 MG, 1X/DAY
     Route: 048
     Dates: start: 201602

REACTIONS (6)
  - Prescribed underdose [Unknown]
  - Therapeutic product effect incomplete [Unknown]
  - Lung carcinoma cell type unspecified stage IV [Not Recovered/Not Resolved]
  - Thrombosis [Recovered/Resolved]
  - Intentional product misuse [Unknown]
  - Product use issue [Unknown]

NARRATIVE: CASE EVENT DATE: 201602
